FAERS Safety Report 8298783-6 (Version None)
Quarter: 2012Q2

REPORT INFORMATION
  Report Type: 
  Country: None (occurrence: None)
  Receive Date: 20120419
  Receipt Date: 20120416
  Transmission Date: 20120825
  Serious: Yes (Other)
  Sender: FDA-Public Use
  Company Number: CA-JNJFOC-20120407707

PATIENT
  Age: 58 Year
  Sex: Female

DRUGS (4)
  1. BACLOFEN [Concomitant]
     Indication: JAW DISORDER
     Route: 065
     Dates: start: 20070101
  2. ESCITALOPRAM [Concomitant]
     Indication: GENERALISED ANXIETY DISORDER
     Dosage: INTERVAL 2 MO.
     Route: 065
  3. NICODERM [Suspect]
     Indication: SMOKING CESSATION THERAPY
     Dosage: PLACING PATCH ON 06:00 AM AND REMOVING AT 10:00 PM
     Route: 062
  4. ZOPICLONE [Concomitant]
     Indication: SLEEP DISORDER
     Route: 065
     Dates: start: 20080101

REACTIONS (1)
  - TINNITUS [None]
